FAERS Safety Report 7549302-0 (Version None)
Quarter: 2011Q2

REPORT INFORMATION
  Report Type: 
  Country: None (occurrence: None)
  Receive Date: 20110615
  Receipt Date: 20010320
  Transmission Date: 20111010
  Serious: Yes (Hospitalization)
  Sender: FDA-Public Use
  Company Number: PHBS2001CA02864

PATIENT
  Sex: Female

DRUGS (3)
  1. ACETYLSALICYLIC ACID ENTERIC COATED [Concomitant]
     Dosage: 325 MG/DAY
     Dates: start: 20010116
  2. EXELON [Suspect]
     Dosage: 4.5 MG, BID
     Route: 048
     Dates: start: 20010312, end: 20010312
  3. EXELON [Suspect]
     Dosage: 1.5 MG, BID
     Route: 048
     Dates: start: 20010110, end: 20010311

REACTIONS (1)
  - CEREBROVASCULAR ACCIDENT [None]
